FAERS Safety Report 6693238-4 (Version None)
Quarter: 2010Q2

REPORT INFORMATION
  Report Type: 
  Country: None (occurrence: None)
  Receive Date: 20100422
  Receipt Date: 20100416
  Transmission Date: 20101027
  Serious: Yes (Hospitalization)
  Sender: FDA-Public Use
  Company Number: US-GILEAD-2010-0028539

PATIENT
  Sex: Female
  Weight: 128.03 kg

DRUGS (17)
  1. LETAIRIS [Suspect]
     Indication: PULMONARY ARTERIAL HYPERTENSION
     Route: 048
     Dates: start: 20080820
  2. REMODULIN [Concomitant]
  3. REVATIO [Concomitant]
  4. DIGOXIN [Concomitant]
  5. METOPROLOL TARTRATE [Concomitant]
  6. COUMADIN [Concomitant]
  7. ASPIRIN [Concomitant]
  8. GLUCOPHAGE [Concomitant]
  9. SULFAMETHOXAZOLE AND TRIMETHOPRIM [Concomitant]
  10. NASAREL [Concomitant]
  11. NITROFURANTOIN [Concomitant]
  12. MACROBID [Concomitant]
  13. PREDNISONE [Concomitant]
  14. PROTONIX [Concomitant]
  15. XANAX [Concomitant]
  16. LEVOTHYROXINE [Concomitant]
  17. POTASSIUM CHLORIDE [Concomitant]

REACTIONS (2)
  - DYSPNOEA [None]
  - PULMONARY HYPERTENSION [None]
